FAERS Safety Report 15018430 (Version 1)
Quarter: 2018Q2

REPORT INFORMATION
  Report Type: Spontaneous
  Country: US (occurrence: US)
  Receive Date: 20180615
  Receipt Date: 20180615
  Transmission Date: 20180711
  Serious: No
  Sender: FDA-Public Use
  Company Number: US-WOCKHARDT USA, LLC-2049505

PATIENT
  Sex: Female

DRUGS (1)
  1. AZITHROMYCIN TABLETS [Suspect]
     Active Substance: AZITHROMYCIN ANHYDROUS

REACTIONS (1)
  - Deafness [Not Recovered/Not Resolved]
